FAERS Safety Report 19694310 (Version 2)
Quarter: 2021Q3

REPORT INFORMATION
  Report Type: Spontaneous
  Country: US (occurrence: US)
  Receive Date: 20210812
  Receipt Date: 20210817
  Transmission Date: 20211014
  Serious: Yes (Life-Threatening, Hospitalization)
  Sender: FDA-Public Use
  Company Number: US-TEVA-2021-US-1940300

PATIENT
  Age: 40 Year
  Sex: Female

DRUGS (2)
  1. METHOTREXATE. [Suspect]
     Active Substance: METHOTREXATE
     Indication: ACUTE LYMPHOCYTIC LEUKAEMIA
     Route: 042
  2. VINCRISTINE [Concomitant]
     Active Substance: VINCRISTINE
     Indication: ACUTE LYMPHOCYTIC LEUKAEMIA (IN REMISSION)
     Route: 042

REACTIONS (11)
  - Mucosal inflammation [Unknown]
  - Toxicity to various agents [Unknown]
  - Myelosuppression [Recovering/Resolving]
  - Intertrigo [Unknown]
  - Skin exfoliation [Unknown]
  - Drug-induced liver injury [Recovering/Resolving]
  - Blister [Recovering/Resolving]
  - Face oedema [Unknown]
  - Stomatitis [Unknown]
  - Rash [Recovering/Resolving]
  - Acute kidney injury [Unknown]
